FAERS Safety Report 8016252-5 (Version None)
Quarter: 2011Q4

REPORT INFORMATION
  Report Type: 
  Country: None (occurrence: None)
  Receive Date: 20111230
  Receipt Date: 20111222
  Transmission Date: 20120403
  Serious: Yes (Hospitalization, Other)
  Sender: FDA-Public Use
  Company Number: US-MERCK-1106USA02917

PATIENT
  Age: 74 Year
  Sex: Female
  Weight: 81 kg

DRUGS (50)
  1. ANUSOL (BISMUTH OXIDE (+) BISMUTH SUBGALLATE (+) PERUVIAN BALSAM (+) Z [Concomitant]
     Route: 054
  2. RESTORIL [Concomitant]
     Route: 048
     Dates: end: 20100101
  3. HYDROCODONE [Concomitant]
     Route: 065
  4. LORAZEPAM [Concomitant]
     Route: 065
  5. LIFE EXTENSION SUPER K WITH K2 [Concomitant]
     Route: 048
  6. FOSAMAX [Suspect]
     Indication: OSTEOPENIA
     Route: 048
     Dates: start: 20060101, end: 20100101
  7. SIMVASTATIN [Concomitant]
     Route: 065
     Dates: end: 20080101
  8. SYNTHROID [Concomitant]
     Indication: HYPOTHYROIDISM
     Route: 048
     Dates: start: 19810101
  9. FLUOXETINE [Concomitant]
     Route: 048
  10. LEVOTHYROXINE SODIUM [Concomitant]
     Route: 048
  11. VITAMINS (UNSPECIFIED) [Concomitant]
     Route: 048
  12. OSTEO-BI-FLEX [Concomitant]
     Route: 065
  13. ANTIOXIDANTS (UNSPECIFIED) [Concomitant]
     Route: 065
  14. UBIDECARENONE [Concomitant]
     Route: 048
  15. GINGER [Concomitant]
     Route: 065
  16. SIMPLY SLEEP [Concomitant]
     Route: 065
  17. VITAMIN D (UNSPECIFIED) [Concomitant]
     Route: 048
  18. ANALGESIC (UNSPECIFIED) [Concomitant]
     Route: 048
  19. EVOXAC [Concomitant]
     Route: 065
  20. FOLIC ACID [Concomitant]
     Route: 065
  21. NEXIUM [Concomitant]
     Route: 048
  22. VYTORIN [Concomitant]
     Route: 048
  23. SENNA [Concomitant]
     Route: 065
  24. CRANBERRY [Concomitant]
     Route: 065
  25. BORAGE OIL AND FLAXSEED AND OMEGA-3 MARINE TRIGLYCERIDES AND SAFFLOWER [Concomitant]
     Route: 065
  26. OMEPRAZOLE [Concomitant]
     Route: 048
  27. CITRACAL + D [Concomitant]
     Route: 065
  28. ASCORBIC ACID [Concomitant]
     Route: 065
  29. CORRECTOL [Concomitant]
     Route: 065
  30. TEA [Concomitant]
     Route: 048
  31. ICAPS [Concomitant]
     Route: 048
  32. PRILOSEC [Concomitant]
     Route: 048
     Dates: start: 20000101
  33. CELEBREX [Concomitant]
     Route: 048
  34. CITRUCEL (CALCIUM CARBONATE (+) CHOLECALCIFEROL (+) METHYLCELLULOSE) [Concomitant]
     Route: 065
  35. OMEGA-3 MARINE TRIGLYCERIDES [Concomitant]
     Route: 065
  36. GASTROINTESTINAL PREPARATIONS (UNSPECIFIED) [Concomitant]
     Route: 065
  37. VITAMIN B COMPLEX [Concomitant]
     Route: 048
  38. ULTRAM [Concomitant]
     Route: 048
  39. IBUPROFEN [Concomitant]
     Route: 048
  40. LIFE EXTENSION SUPER OMEGA-3 [Concomitant]
     Route: 065
  41. ZOCOR [Concomitant]
     Route: 048
  42. AMBIEN [Concomitant]
     Route: 065
  43. IMMUNOTEC IMMUNOCAL [Concomitant]
     Route: 065
  44. RESTASIS [Concomitant]
     Route: 047
  45. PRAVACHOL [Concomitant]
     Route: 048
  46. SKELAXIN [Concomitant]
     Route: 048
  47. GARLIC [Concomitant]
     Route: 065
  48. GRAPE SEEDS AND PHOSPHATIDYL CHOLINE AND RESVERATROL [Concomitant]
     Route: 065
  49. FOSAMAX [Suspect]
     Route: 048
     Dates: start: 20100801
  50. FOSAMAX [Suspect]
     Route: 048
     Dates: start: 20080220, end: 20091109

REACTIONS (16)
  - LIMB DISCOMFORT [None]
  - MAJOR DEPRESSION [None]
  - VENOUS INSUFFICIENCY [None]
  - PAIN IN EXTREMITY [None]
  - MUSCLE SPASMS [None]
  - TYPE 2 DIABETES MELLITUS [None]
  - ARTHROPATHY [None]
  - DEVICE FAILURE [None]
  - HAEMORRHOIDS [None]
  - FALL [None]
  - ANAEMIA [None]
  - UPPER LIMB FRACTURE [None]
  - HYPERTENSION [None]
  - LOWER GASTROINTESTINAL HAEMORRHAGE [None]
  - FEMUR FRACTURE [None]
  - ACTINIC KERATOSIS [None]
